FAERS Safety Report 5767377-6 (Version None)
Quarter: 2008Q2

REPORT INFORMATION
  Report Type: 
  Country: None (occurrence: None)
  Receive Date: 20080612
  Receipt Date: 20080606
  Transmission Date: 20081010
  Serious: Yes (Hospitalization)
  Sender: FDA-Public Use
  Company Number: B0514691A

PATIENT
  Age: 2 Year
  Sex: Female

DRUGS (6)
  1. ZIDOVUDINE [Suspect]
     Indication: HIV INFECTION
     Dosage: 100MG TWICE PER DAY
     Dates: start: 20080109, end: 20080310
  2. ABACAVIR [Suspect]
     Indication: HIV INFECTION
     Dosage: 100MG TWICE PER DAY
     Dates: start: 20080109
  3. LAMIVUDINE [Suspect]
     Indication: HIV INFECTION
     Dosage: 50MG TWICE PER DAY
     Dates: start: 20080109
  4. NEVIRAPINE [Suspect]
     Indication: HIV INFECTION
     Dosage: 100MG TWICE PER DAY
     Dates: start: 20080109
  5. COTRIM [Suspect]
     Dosage: 240MG PER DAY
     Dates: start: 20071030, end: 20080310
  6. MULTI-VITAMIN [Concomitant]

REACTIONS (8)
  - ANAEMIA [None]
  - COUGH [None]
  - DIARRHOEA [None]
  - EYE DISCHARGE [None]
  - EYE PRURITUS [None]
  - NEUTROPENIA [None]
  - PALLOR [None]
  - RHINORRHOEA [None]
